FAERS Safety Report 7712149-6 (Version None)
Quarter: 2011Q3

REPORT INFORMATION
  Report Type: 
  Country: None (occurrence: None)
  Receive Date: 20110826
  Receipt Date: 20110825
  Transmission Date: 20111222
  Serious: Yes (Hospitalization)
  Sender: FDA-Public Use
  Company Number: DE-SANOFI-AVENTIS-2011SA049366

PATIENT
  Age: 74 Year
  Sex: Male

DRUGS (4)
  1. LEUCOVORIN CALCIUM [Suspect]
     Route: 041
     Dates: start: 20110314, end: 20110314
  2. DOCETAXEL [Suspect]
     Route: 041
     Dates: start: 20110314, end: 20110314
  3. EFUDEX [Suspect]
     Route: 041
     Dates: start: 20110314, end: 20110314
  4. OXALIPLATIN [Suspect]
     Route: 041
     Dates: start: 20110314, end: 20110314

REACTIONS (9)
  - PLEURISY [None]
  - MACROANGIOPATHY [None]
  - PNEUMONIA [None]
  - DIASTOLIC DYSFUNCTION [None]
  - TRANSIENT ISCHAEMIC ATTACK [None]
  - ARTERIOSCLEROSIS [None]
  - GASTROOESOPHAGEAL REFLUX DISEASE [None]
  - POLYNEUROPATHY [None]
  - ATRIOVENTRICULAR BLOCK [None]
